FAERS Safety Report 6504666-1 (Version None)
Quarter: 2009Q4

REPORT INFORMATION
  Report Type: 
  Country: None (occurrence: None)
  Receive Date: 20091218
  Receipt Date: 20091209
  Transmission Date: 20100525
  Serious: Yes (Hospitalization)
  Sender: FDA-Public Use
  Company Number: US-BIOGENIDEC-190803

PATIENT
  Sex: Female
  Weight: 58 kg

DRUGS (5)
  1. AVONEX [Suspect]
     Indication: MULTIPLE SCLEROSIS
     Route: 030
     Dates: start: 19960701, end: 20030801
  2. AVONEX [Suspect]
     Route: 030
     Dates: start: 20030801, end: 20091001
  3. ZOVIA 1/35E-21 [Concomitant]
     Indication: CONTRACEPTION
  4. ELAVIL [Concomitant]
     Indication: DRUG USE FOR UNKNOWN INDICATION
  5. DILAUDID [Concomitant]
     Indication: MULTIPLE SCLEROSIS

REACTIONS (5)
  - FLUID RETENTION [None]
  - INFLUENZA LIKE ILLNESS [None]
  - INJECTION SITE SCAR [None]
  - MIGRAINE [None]
  - NAUSEA [None]
